FAERS Safety Report 15821449 (Version 2)
Quarter: 2019Q1

REPORT INFORMATION
  Report Type: Spontaneous
  Country: BR (occurrence: BR)
  Receive Date: 20190114
  Receipt Date: 20190128
  Transmission Date: 20190417
  Serious: Yes (Other)
  Sender: FDA-Public Use
  Company Number: BR-SA-2019SA003758

PATIENT
  Sex: Female
  Weight: 37 kg

DRUGS (12)
  1. OSCAL [CALCIUM CARBONATE] [Concomitant]
     Indication: OSTEOPENIA
  2. SANY D [Concomitant]
     Indication: OSTEOPOROSIS
  3. APIDRA [Suspect]
     Active Substance: INSULIN GLULISINE
     Indication: TYPE 1 DIABETES MELLITUS
     Dosage: 3UI IN THE BREAKFAST AND 3UI AT DINNER
     Route: 058
     Dates: start: 2012
  4. SANY D [Concomitant]
     Indication: OSTEOARTHRITIS
     Dosage: 1 DF, QD
     Route: 065
     Dates: start: 201811
  5. SANY D [Concomitant]
     Indication: OSTEOPENIA
  6. BUSONID [Concomitant]
     Active Substance: BUDESONIDE
     Indication: RHINITIS
     Dosage: INHALATION ONCE A DAY ON THE NOSE AT NIGHT
     Dates: start: 2015
  7. OSCAL [CALCIUM CARBONATE] [Concomitant]
     Indication: OSTEOPOROSIS
  8. SANSET [Concomitant]
     Indication: RHINITIS
     Dosage: INHALATION ONCE A DAY ON THE NOSE IN THE MORNING
     Dates: start: 2015
  9. LANTUS [Suspect]
     Active Substance: INSULIN GLARGINE
     Indication: TYPE 1 DIABETES MELLITUS
     Dosage: 2 IU, QD IN THE MORNING
     Route: 058
     Dates: start: 2016
  10. OSCAL [CALCIUM CARBONATE] [Concomitant]
     Indication: OSTEOARTHRITIS
     Dosage: 1 DF, QD
     Route: 065
     Dates: start: 201811
  11. LOSARTAN. [Concomitant]
     Active Substance: LOSARTAN
     Indication: HYPERTENSION
     Dosage: 2 DF, QD
     Route: 048
  12. SIMVASTATIN. [Concomitant]
     Active Substance: SIMVASTATIN
     Indication: BLOOD TRIGLYCERIDES ABNORMAL
     Dosage: 1 DF, QD
     Route: 048

REACTIONS (11)
  - Visual impairment [Unknown]
  - Deafness [Unknown]
  - Incorrect dose administered [Unknown]
  - Hyperglycaemia [Unknown]
  - Osteoporosis [Unknown]
  - Osteoarthritis [Unknown]
  - Pain in extremity [Unknown]
  - Wrong technique in product usage process [Unknown]
  - Confusional state [Unknown]
  - Osteopenia [Unknown]
  - Hypoglycaemia [Unknown]

NARRATIVE: CASE EVENT DATE: 2017
